FAERS Safety Report 6173205-X (Version None)
Quarter: 2009Q2

REPORT INFORMATION
  Report Type: 
  Country: None (occurrence: None)
  Receive Date: 20090430
  Receipt Date: 20090422
  Transmission Date: 20091009
  Serious: Yes (Death, Life-Threatening)
  Sender: FDA-Public Use
  Company Number: GB-PFIZER INC-2009201625

PATIENT

DRUGS (13)
  1. SUNITINIB MALATE [Suspect]
     Indication: RENAL CANCER METASTATIC
     Dosage: 37.5 MG, 1X/DAY
     Route: 048
     Dates: start: 20090130, end: 20090301
  2. ASPIRIN [Concomitant]
  3. BISOPROLOL FUMARATE [Concomitant]
  4. DOMPERIDONE [Concomitant]
  5. DOXAZOSIN [Concomitant]
  6. LERCANIDIPINE [Concomitant]
  7. LOSARTAN [Concomitant]
  8. LEVOTHYROXINE SODIUM [Concomitant]
  9. METFORMIN [Concomitant]
  10. MST CONTINUS ^ASTA MEDICA^ [Concomitant]
  11. OMEPRAZOLE [Concomitant]
  12. SENNA [Concomitant]
  13. SEVREDOL [Concomitant]

REACTIONS (1)
  - RENAL FAILURE ACUTE [None]
